FAERS Safety Report 8171654-1 (Version None)
Quarter: 2012Q1

REPORT INFORMATION
  Report Type: 
  Country: None (occurrence: None)
  Receive Date: 20120228
  Receipt Date: 20120216
  Transmission Date: 20120608
  Serious: Yes (Death)
  Sender: FDA-Public Use
  Company Number: JP-ACTELION-A-CH2010-41126

PATIENT
  Sex: Female
  Weight: 4 kg

DRUGS (10)
  1. TRACLEER [Suspect]
     Indication: PULMONARY ARTERIAL HYPERTENSION
     Dosage: 6 MG, BID
     Route: 048
     Dates: start: 20080328, end: 20080428
  2. TRACLEER [Suspect]
     Dosage: 2 MG, BID
     Route: 048
     Dates: start: 20080225, end: 20080303
  3. TRACLEER [Suspect]
     Dosage: 3 MG, BID
     Route: 048
     Dates: start: 20080304, end: 20080310
  4. FUROSEMIDE [Concomitant]
  5. TRACLEER [Suspect]
     Dosage: 4 MG, BID
     Route: 048
     Dates: start: 20080311, end: 20080325
  6. SPIRONOLACTONE [Concomitant]
  7. OXYGEN [Concomitant]
  8. SULFAMETHOXAZOLE + TRIMETHOPRIM [Concomitant]
  9. TRACLEER [Suspect]
     Dosage: 5 MG, BID
     Route: 048
     Dates: start: 20080326, end: 20080327
  10. BERAPROST SODIUM [Concomitant]

REACTIONS (11)
  - MOOD ALTERED [None]
  - CARDIAC FAILURE [None]
  - TACHYCARDIA [None]
  - TACHYPNOEA [None]
  - CENTRAL VENOUS CATHETERISATION [None]
  - HEPATIC FUNCTION ABNORMAL [None]
  - RESTLESSNESS [None]
  - BILEVEL POSITIVE AIRWAY PRESSURE [None]
  - CARDIOMEGALY [None]
  - ASPARTATE AMINOTRANSFERASE INCREASED [None]
  - ALANINE AMINOTRANSFERASE INCREASED [None]
